FAERS Safety Report 5268085-0 (Version None)
Quarter: 2007Q1

REPORT INFORMATION
  Report Type: 
  Country: None (occurrence: None)
  Receive Date: 20070314
  Receipt Date: 20070314
  Transmission Date: 20070707
  Serious: Yes (Other)
  Sender: FDA-Public Use
  Company Number: None

PATIENT
  Sex: Male

DRUGS (1)
  1. SEPTOCAINE [Suspect]
     Indication: LOCAL ANAESTHESIA
     Dosage: 1.7ML DENTAL
     Route: 004
     Dates: start: 20070125, end: 20070125

REACTIONS (2)
  - PARAESTHESIA ORAL [None]
  - POST PROCEDURAL COMPLICATION [None]
